FAERS Safety Report 8330714 (Version 2)
Quarter: 2012Q4

REPORT INFORMATION
  Report Type: 
  Country: US (occurrence: US)
  Receive Date: 20120111
  Receipt Date: 20121019
  Transmission Date: 20130627
  Serious: Yes (Other)
  Sender: FDA-Public Use
  Company Number: US-ROCHE-792731

PATIENT
  Age: 45 None
  Sex: Male
  Weight: 83.99 kg

DRUGS (2)
  1. ACCUTANE [Suspect]
     Indication: ACNE
     Route: 048
     Dates: start: 19830101, end: 19851231
  2. ACCUTANE [Suspect]
     Route: 048

REACTIONS (4)
  - Inflammatory bowel disease [Unknown]
  - Colitis ulcerative [Unknown]
  - Diverticulitis [Unknown]
  - Intestinal obstruction [Unknown]
